FAERS Safety Report 8811098 (Version 1)
Quarter: 2012Q4

REPORT INFORMATION
  Report Type: 
  Country: US (occurrence: US)
  Receive Date: 20120927
  Receipt Date: 20120927
  Transmission Date: 20130627
  Serious: Yes (Hospitalization)
  Sender: FDA-Public Use
  Company Number: US-B.I. PHARMACEUTICALS,INC./RIDGEFIELD-2012-BP-23031BP

PATIENT
  Sex: Female

DRUGS (8)
  1. PRADAXA [Suspect]
     Indication: ATRIAL FIBRILLATION
     Dosage: 300 mg
     Route: 048
     Dates: start: 2011, end: 2012
  2. DIGOXIN [Concomitant]
     Dates: start: 2010
  3. METOPROLOL [Concomitant]
     Dates: start: 2010
  4. LEVOTHYROXINE [Concomitant]
     Indication: HYPOTHYROIDISM
     Dates: start: 1968
  5. VITAMIN D [Concomitant]
     Indication: VITAMIN SUPPLEMENTATION
  6. ZOLOFT [Concomitant]
     Indication: GRIEF REACTION
     Dates: start: 2012
  7. CALCITROL [Concomitant]
     Indication: MALABSORPTION
  8. CALCIUM LACTATE [Concomitant]
     Indication: MINERAL SUPPLEMENTATION
     Route: 048

REACTIONS (4)
  - Hepatic failure [Recovered/Resolved]
  - Heart rate abnormal [Recovered/Resolved]
  - Oedema peripheral [Not Recovered/Not Resolved]
  - Delirium [Recovered/Resolved]
